FAERS Safety Report 21086801 (Version 3)
Quarter: 2022Q4

REPORT INFORMATION
  Report Type: Spontaneous
  Country: US (occurrence: US)
  Receive Date: 20220715
  Receipt Date: 20221031
  Transmission Date: 20230113
  Serious: No
  Sender: FDA-Public Use
  Company Number: US-PFIZER INC-202200915982

PATIENT
  Age: 5 Year
  Sex: Male

DRUGS (1)
  1. GENOTROPIN [Suspect]
     Active Substance: SOMATROPIN
     Dosage: 0.4 MG (0.4MG BY INJECTION UPPER LEG)
     Dates: start: 2021

REACTIONS (3)
  - Wrong technique in device usage process [Unknown]
  - Product storage error [Unknown]
  - Device issue [Unknown]
